FAERS Safety Report 5651345-9 (Version None)
Quarter: 2008Q1

REPORT INFORMATION
  Report Type: 
  Country: None (occurrence: None)
  Receive Date: 20080305
  Receipt Date: 20080305
  Transmission Date: 20080703
  Serious: Yes (Hospitalization)
  Sender: FDA-Public Use
  Company Number: CN-JNJFOC-20080205183

PATIENT
  Age: 32 Year
  Sex: Male

DRUGS (3)
  1. TYLENOL (CAPLET) [Suspect]
     Route: 048
  2. TYLENOL (CAPLET) [Suspect]
     Indication: HEADACHE
     Route: 048
  3. FU FANG AN FEN PU XIN PIAN [Concomitant]
     Indication: NASOPHARYNGITIS

REACTIONS (3)
  - DRUG HYPERSENSITIVITY [None]
  - OCULAR HYPERAEMIA [None]
  - RASH [None]
